FAERS Safety Report 25473043 (Version 1)
Quarter: 2025Q2

REPORT INFORMATION
  Report Type: Spontaneous
  Country: DE (occurrence: DE)
  Receive Date: 20250624
  Receipt Date: 20250624
  Transmission Date: 20250717
  Serious: Yes (Other)
  Sender: AMGEN
  Company Number: DE-AMGEN-DEUSP2025120798

PATIENT

DRUGS (3)
  1. FILGRASTIM [Suspect]
     Active Substance: FILGRASTIM
     Indication: Stem cell transplant
     Dosage: UNK UNK, QD
     Route: 058
  2. FILGRASTIM [Suspect]
     Active Substance: FILGRASTIM
     Indication: White blood cell disorder
  3. LENOGRASTIM [Suspect]
     Active Substance: LENOGRASTIM
     Indication: Stem cell transplant
     Route: 065

REACTIONS (2)
  - Toxicity to various agents [Unknown]
  - Pyrexia [Unknown]
